FAERS Safety Report 8196144-1 (Version None)
Quarter: 2012Q1

REPORT INFORMATION
  Report Type: 
  Country: None (occurrence: None)
  Receive Date: 20120227
  Receipt Date: 20120120
  Transmission Date: 20120608
  Serious: No
  Sender: FDA-Public Use
  Company Number: 343421

PATIENT
  Age: 53 Year
  Sex: Male

DRUGS (1)
  1. VICTOZA [Suspect]
     Indication: TYPE 2 DIABETES MELLITUS
     Dosage: 0.6 MG, UNK, SUBCUTANEOUS
     Route: 058

REACTIONS (6)
  - MOOD SWINGS [None]
  - ANXIETY [None]
  - DIARRHOEA [None]
  - PALPITATIONS [None]
  - NAUSEA [None]
  - PARANOIA [None]
